FAERS Safety Report 18191289 (Version 2)
Quarter: 2021Q1

REPORT INFORMATION
  Report Type: Report from Study
  Country: JP (occurrence: JP)
  Receive Date: 20200825
  Receipt Date: 20210301
  Transmission Date: 20210419
  Serious: Yes (Other)
  Sender: FDA-Public Use
  Company Number: JP-ASTRAZENECA-2020SF05229

PATIENT
  Age: 73 Year
  Sex: Female

DRUGS (2)
  1. TAGRISSO [Suspect]
     Active Substance: OSIMERTINIB
     Indication: NON-SMALL CELL LUNG CANCER
     Route: 048
     Dates: start: 20190731, end: 20190924
  2. TAGRISSO [Suspect]
     Active Substance: OSIMERTINIB
     Indication: NON-SMALL CELL LUNG CANCER
     Route: 048
     Dates: start: 20190725, end: 20190727

REACTIONS (4)
  - Hepatic function abnormal [Unknown]
  - Interstitial lung disease [Unknown]
  - Urticaria [Unknown]
  - Anaemia [Unknown]

NARRATIVE: CASE EVENT DATE: 20190727
